FAERS Safety Report 9628892 (Version 2)
Quarter: 2013Q4

REPORT INFORMATION
  Report Type: Spontaneous
  Country: US (occurrence: US)
  Receive Date: 20131017
  Receipt Date: 20131017
  Transmission Date: 20140711
  Serious: Yes (Other)
  Sender: FDA-Public Use
  Company Number: PHHY2013US075611

PATIENT
  Age: 59 Year
  Sex: Male

DRUGS (8)
  1. LIORESAL INTRATHECAL [Suspect]
     Indication: MUSCLE SPASTICITY
     Dosage: 175 UG, DAILY
     Route: 037
     Dates: end: 20130708
  2. POTASSIUM CHLORIDE [Suspect]
     Dosage: UNK UKN, UNK
  3. MIDODRINE HYDROCHLORIDE [Suspect]
     Dosage: UNK UKN, UNK
  4. EFFEXOR [Suspect]
     Dosage: UNK UKN, UNK
  5. PSEUDOEPHEDRINE [Suspect]
     Dosage: UNK UKN, UNK
  6. LYRICA [Suspect]
     Dosage: UNK UKN, UNK
  7. LASIX [Suspect]
     Dosage: UNK UKN, UNK
  8. KLONOPIN [Suspect]
     Dosage: UNK UKN, UNK

REACTIONS (6)
  - Staphylococcal infection [Recovered/Resolved]
  - Staphylococcus test positive [Recovered/Resolved]
  - Pocket erosion [Recovered/Resolved]
  - Implant site infection [Recovered/Resolved]
  - Implant site swelling [Recovered/Resolved]
  - Implant site discharge [Recovered/Resolved]
